FAERS Safety Report 14008692 (Version 1)
Quarter: 2017Q3

REPORT INFORMATION
  Report Type: Spontaneous
  Country: US (occurrence: US)
  Receive Date: 20170925
  Receipt Date: 20170925
  Transmission Date: 20171128
  Serious: No
  Sender: FDA-Public Use
  Company Number: US-OREXO US, INC.-E2B_00000051

PATIENT
  Age: 46 Year
  Sex: Female
  Weight: 55.39 kg

DRUGS (4)
  1. ZUBSOLV [Suspect]
     Active Substance: BUPRENORPHINE HYDROCHLORIDE\NALOXONE HYDROCHLORIDE
     Dosage: 5.7/1.4 MG
     Route: 060
     Dates: start: 20170225
  2. ZUBSOLV [Suspect]
     Active Substance: BUPRENORPHINE HYDROCHLORIDE\NALOXONE HYDROCHLORIDE
     Indication: DRUG DEPENDENCE
     Dosage: 5.7/1.4 MG
     Route: 060
     Dates: start: 20160105, end: 20170205
  3. OXYCODONE [Concomitant]
     Active Substance: OXYCODONE
     Indication: SCIATICA
  4. OXYCODONE [Concomitant]
     Active Substance: OXYCODONE
     Indication: INTERVERTEBRAL DISC PROTRUSION

REACTIONS (5)
  - Speech disorder [Recovered/Resolved]
  - Fatigue [Unknown]
  - Insomnia [Recovered/Resolved]
  - Tachyphrenia [Recovered/Resolved]
  - Foot fracture [Recovering/Resolving]

NARRATIVE: CASE EVENT DATE: 20160105
